FAERS Safety Report 6457280-0 (Version None)
Quarter: 2009Q4

REPORT INFORMATION
  Report Type: 
  Country: None (occurrence: None)
  Receive Date: 20091125
  Receipt Date: 20091116
  Transmission Date: 20100525
  Serious: Yes (Other)
  Sender: FDA-Public Use
  Company Number: US-PFIZER INC-2009298537

PATIENT
  Age: 28 Year
  Sex: Male

DRUGS (6)
  1. VFEND [Suspect]
     Dosage: 200 MG, 2X/DAY
  2. TACROLIMUS [Concomitant]
  3. PREDNISONE TAB [Suspect]
  4. SIROLIMUS [Concomitant]
  5. DAPSONE [Concomitant]
  6. MYCOPHENOLATE MOFETIL [Concomitant]

REACTIONS (3)
  - ACTINIC KERATOSIS [None]
  - PHOTOSENSITIVITY REACTION [None]
  - SQUAMOUS CELL CARCINOMA [None]
